FAERS Safety Report 21461453 (Version 1)
Quarter: 2022Q4

REPORT INFORMATION
  Report Type: Report from Study
  Country: US (occurrence: US)
  Receive Date: 20221015
  Receipt Date: 20221015
  Transmission Date: 20230113
  Serious: No
  Sender: FDA-Public Use
  Company Number: US-ABBVIE-4142294

PATIENT
  Sex: Female

DRUGS (22)
  1. RINVOQ [Suspect]
     Active Substance: UPADACITINIB
     Indication: Rheumatoid arthritis
     Route: 048
     Dates: start: 202205
  2. IRON 325(65) MG TABLET [Concomitant]
     Indication: Product used for unknown indication
     Route: 048
  3. LEVOTHYROXINE 100 MCG CAPSULE [Concomitant]
     Indication: Product used for unknown indication
     Dosage: 100 MCG
     Route: 048
  4. ACETAMINOPHEN\HYDROCODONE [Concomitant]
     Active Substance: ACETAMINOPHEN\HYDROCODONE
     Indication: Product used for unknown indication
     Route: 065
  5. VITAMIN D3 [Concomitant]
     Active Substance: CHOLECALCIFEROL
     Indication: Product used for unknown indication
     Dosage: 250 MCG
     Route: 048
  6. trulicity 1.5 mg/0.5 ml pen injector [Concomitant]
     Indication: Product used for unknown indication
     Dosage: 1.5 MG/0.5 ML
     Route: 065
  7. PREDNISONE [Concomitant]
     Active Substance: PREDNISONE
     Indication: Product used for unknown indication
     Route: 048
  8. PILOCARPINE: HCL 5 MG TABLET [Concomitant]
     Indication: Product used for unknown indication
     Route: 048
  9. JANUVIA [Concomitant]
     Active Substance: SITAGLIPTIN PHOSPHATE
     Indication: Product used for unknown indication
     Route: 048
  10. TYLENOL ARTHRITIS 650 MG TABLET SA [Concomitant]
     Indication: Product used for unknown indication
     Route: 048
  11. METFORMIN HYDROCHLORIDE [Concomitant]
     Active Substance: METFORMIN HYDROCHLORIDE
     Indication: Product used for unknown indication
     Route: 048
  12. ZINC 50 MG TABLET [Concomitant]
     Indication: Product used for unknown indication
     Route: 048
  13. ROSUVASTATIN CALCIUM 5 MG TABLET [Concomitant]
     Indication: Product used for unknown indication
     Route: 048
  14. TRESIBA FLEXTOUCHU-100 [Concomitant]
     Indication: Product used for unknown indication
     Route: 065
  15. GABAPENTIN [Concomitant]
     Active Substance: GABAPENTIN
     Indication: Product used for unknown indication
     Route: 048
  16. EXCEDRIN MIGRAINE 250-250-65 TABLET [Concomitant]
     Indication: Product used for unknown indication
     Dosage: 250-250-65
     Route: 065
  17. MONTELUKAST SODIUM 10 MG TABLET [Concomitant]
     Indication: Product used for unknown indication
     Route: 048
  18. NOVOLOG [Concomitant]
     Active Substance: INSULIN ASPART
     Indication: Product used for unknown indication
     Route: 065
  19. OFEV 100 MG CAPSULE [Concomitant]
     Indication: Product used for unknown indication
     Route: 048
  20. DULOXETINE HCL 60 MG CAPSULE DR [Concomitant]
     Indication: Product used for unknown indication
     Route: 048
  21. NEXIUM 40 MG CAPSULE [Concomitant]
     Indication: Product used for unknown indication
     Route: 048
  22. PRAMIPEXOLE DIHYDROCHLORIDE [Concomitant]
     Active Substance: PRAMIPEXOLE DIHYDROCHLORIDE
     Indication: Product used for unknown indication
     Route: 065

REACTIONS (1)
  - Feeling abnormal [Unknown]
